FAERS Safety Report 17797109 (Version 1)
Quarter: 2020Q2

REPORT INFORMATION
  Report Type: Spontaneous
  Country: US (occurrence: US)
  Receive Date: 20200515
  Receipt Date: 20200515
  Transmission Date: 20200714
  Serious: No
  Sender: FDA-Public Use
  Company Number: None

PATIENT
  Sex: Female

DRUGS (1)
  1. COPAXONE [Suspect]
     Active Substance: GLATIRAMER ACETATE
     Indication: ILL-DEFINED DISORDER
     Route: 058
     Dates: start: 20200423

REACTIONS (3)
  - Urticaria [None]
  - Pruritus [None]
  - Injection site inflammation [None]
